FAERS Safety Report 6036152-X (Version None)
Quarter: 2009Q1

REPORT INFORMATION
  Report Type: 
  Country: None (occurrence: None)
  Receive Date: 20090113
  Receipt Date: 20090107
  Transmission Date: 20090719
  Serious: Yes (Hospitalization)
  Sender: FDA-Public Use
  Company Number: FR-GILEAD-2009-0019752

PATIENT
  Sex: Female
  Weight: 40.9 kg

DRUGS (7)
  1. TRUVADA [Suspect]
     Indication: HIV INFECTION
     Dates: start: 20081114
  2. SUSTIVA [Suspect]
     Indication: HIV INFECTION
     Dates: start: 20081114
  3. FUZEON [Suspect]
     Indication: HIV INFECTION
     Dates: start: 20081121
  4. RIFATER [Suspect]
     Indication: TUBERCULOSIS
     Dates: start: 20081114
  5. MYAMBUTOL [Suspect]
     Indication: TUBERCULOSIS
     Dates: start: 20081114
  6. SPECIAFOLDINE [Concomitant]
     Indication: ANAEMIA
     Dates: start: 20081106
  7. BACTRIM [Concomitant]
     Indication: PROPHYLAXIS
     Dates: start: 20081106

REACTIONS (3)
  - GENERAL PHYSICAL CONDITION ABNORMAL [None]
  - IMMUNE RECONSTITUTION SYNDROME [None]
  - PYREXIA [None]
